FAERS Safety Report 8879485 (Version 1)
Quarter: 2012Q4

REPORT INFORMATION
  Report Type: 
  Country: US (occurrence: US)
  Receive Date: 20121031
  Receipt Date: 20121031
  Transmission Date: 20130627
  Serious: Yes (Death)
  Sender: FDA-Public Use
  Company Number: US-ASTRAZENECA-2012SE82288

PATIENT
  Age: 90 Year
  Sex: Female
  Weight: 54.4 kg

DRUGS (3)
  1. FASLODEX [Suspect]
     Indication: BREAST CANCER METASTATIC
     Route: 030
     Dates: start: 200308
  2. HIGH BLOOD PRESSURE MEDICATION [Concomitant]
     Indication: HYPERTENSION
  3. TAMOXIFEN [Concomitant]
     Indication: BREAST CANCER

REACTIONS (1)
  - Neoplasm progression [Fatal]
